FAERS Safety Report 5207803-4 (Version None)
Quarter: 2006Q4

REPORT INFORMATION
  Report Type: 
  Country: None (occurrence: None)
  Receive Date: 20061030
  Receipt Date: 20051101
  Transmission Date: 20070319
  Serious: No
  Sender: FDA-Public Use
  Company Number: 2005CT000299

PATIENT
  Age: 43 Year
  Sex: Female
  Weight: 73.0291 kg

DRUGS (16)
  1. VENTAVIS [Suspect]
     Indication: PULMONARY HYPERTENSION
     Dosage: SEE IMAGE, INH
     Route: 055
     Dates: start: 20050620, end: 20050620
  2. VENTAVIS [Suspect]
     Indication: PULMONARY HYPERTENSION
     Dosage: SEE IMAGE, INH
     Route: 055
     Dates: start: 20050620, end: 20051101
  3. WARFARIN SODIUM [Concomitant]
  4. POTASSIUM CHLORIDE [Concomitant]
  5. FOLTX [Concomitant]
  6. TORSEMIDE [Concomitant]
  7. ALTACE [Concomitant]
  8. DIGOXIN [Concomitant]
  9. ALLEGRA [Concomitant]
  10. IBUPROFEN [Concomitant]
  11. AMBIEN [Concomitant]
  12. PRENATAL VITAMINS [Concomitant]
  13. ASPIRIN [Concomitant]
  14. GELATIN [Concomitant]
  15. ESZOPICLONE [Concomitant]
  16. PERCOCET [Concomitant]

REACTIONS (4)
  - DYSPHONIA [None]
  - HEADACHE [None]
  - NAUSEA [None]
  - PULMONARY HYPERTENSION [None]
